FAERS Safety Report 4948079-2 (Version None)
Quarter: 2006Q1

REPORT INFORMATION
  Report Type: 
  Country: None (occurrence: None)
  Receive Date: 20060320
  Receipt Date: 20050913
  Transmission Date: 20060701
  Serious: Yes (Hospitalization)
  Sender: FDA-Public Use
  Company Number: US-MERCK-0509USA01809

PATIENT
  Age: 40 Year
  Sex: Female

DRUGS (2)
  1. VIOXX [Suspect]
     Indication: BACK PAIN
     Route: 048
     Dates: start: 20010620, end: 20020620
  2. VIOXX [Suspect]
     Indication: MYALGIA
     Route: 048
     Dates: start: 20010620, end: 20020620

REACTIONS (13)
  - CELLULITIS [None]
  - CHEST DISCOMFORT [None]
  - CHEST PAIN [None]
  - DEPRESSION [None]
  - DERMATITIS CONTACT [None]
  - DYSPNOEA EXERTIONAL [None]
  - GENERAL PHYSICAL HEALTH DETERIORATION [None]
  - HEADACHE [None]
  - HIATUS HERNIA [None]
  - MIGRAINE [None]
  - SINUSITIS [None]
  - TRANSIENT ISCHAEMIC ATTACK [None]
  - VARICOSE VEIN [None]
